FAERS Safety Report 12950494 (Version 1)
Quarter: 2016Q4

REPORT INFORMATION
  Report Type: Not Available
  Country: None (occurrence: US)
  Receive Date: 20161116
  Receipt Date: 20161116
  Transmission Date: 20170207
  Serious: No
  Sender: FDA-Public Use
  Company Number: US-AKORN-37106

PATIENT

DRUGS (1)
  1. TROPICAMIDE OPHTHALMIC SOLUTION 1% [Suspect]
     Active Substance: TROPICAMIDE

REACTIONS (2)
  - Mydriasis [Unknown]
  - Product quality issue [None]
